FAERS Safety Report 7603122-7 (Version None)
Quarter: 2011Q3

REPORT INFORMATION
  Report Type: 
  Country: None (occurrence: None)
  Receive Date: 20110712
  Receipt Date: 20110627
  Transmission Date: 20111222
  Serious: Yes (Hospitalization, Other)
  Sender: FDA-Public Use
  Company Number: US-AMGEN-USASP2011032970

PATIENT
  Age: 46 Year
  Sex: Female

DRUGS (2)
  1. METHOTREXATE [Concomitant]
  2. ENBREL [Suspect]
     Indication: RHEUMATOID ARTHRITIS
     Dosage: 50 MG, QWK
     Dates: start: 20110509

REACTIONS (7)
  - CONVULSION [None]
  - HYPERSENSITIVITY [None]
  - INJECTION SITE PAIN [None]
  - PYREXIA [None]
  - VULVOVAGINAL PRURITUS [None]
  - MENINGIOMA BENIGN [None]
  - URTICARIA [None]
